FAERS Safety Report 17473450 (Version 1)
Quarter: 2020Q1

REPORT INFORMATION
  Report Type: Report from Study
  Country: GB (occurrence: GB)
  Receive Date: 20200228
  Receipt Date: 20200228
  Transmission Date: 20200409
  Serious: Yes (Hospitalization, Other)
  Sender: FDA-Public Use
  Company Number: GB-JNJFOC-20190704344

PATIENT
  Sex: Male
  Weight: 117 kg

DRUGS (14)
  1. USTEKINUMAB [Suspect]
     Active Substance: USTEKINUMAB
     Indication: PSORIASIS
     Route: 058
     Dates: start: 20170524
  2. FLUCLOXACILLIN [Concomitant]
     Active Substance: FLUCLOXACILLIN
     Dates: start: 20190426, end: 20190503
  3. SALBUTAMOL [Concomitant]
     Active Substance: ALBUTEROL
     Dates: start: 20090101
  4. DABIGATRAN [Concomitant]
     Active Substance: DABIGATRAN
     Dates: start: 20150724
  5. BETNOVATE [Concomitant]
     Active Substance: BETAMETHASONE
     Dates: start: 20180314
  6. IRBESARTAN. [Concomitant]
     Active Substance: IRBESARTAN
     Dates: start: 20090101
  7. FOSTAIR INHALER [Concomitant]
     Dates: start: 20160101
  8. FUROSEMIDE. [Concomitant]
     Active Substance: FUROSEMIDE
     Dates: start: 20090101
  9. MONTELUKAST [Concomitant]
     Active Substance: MONTELUKAST SODIUM
     Dates: start: 20090101
  10. PARACETAMOL [Concomitant]
     Active Substance: ACETAMINOPHEN
     Dates: start: 20090101
  11. BISOPROLOL [Concomitant]
     Active Substance: BISOPROLOL
     Dates: start: 20150724
  12. FOLIC ACID. [Concomitant]
     Active Substance: FOLIC ACID
     Dates: start: 20150401, end: 20190515
  13. SERETIDE [Concomitant]
     Active Substance: FLUTICASONE PROPIONATE\SALMETEROL XINAFOATE
     Dates: start: 20150601, end: 20190514
  14. TRAMADOL. [Concomitant]
     Active Substance: TRAMADOL
     Dates: start: 20090101

REACTIONS (1)
  - Cellulitis [Not Recovered/Not Resolved]

NARRATIVE: CASE EVENT DATE: 20190423
